FAERS Safety Report 5163826-5 (Version None)
Quarter: 2006Q4

REPORT INFORMATION
  Report Type: 
  Country: None (occurrence: None)
  Receive Date: 20061124
  Receipt Date: 20061109
  Transmission Date: 20070319
  Serious: Yes (Other)
  Sender: FDA-Public Use
  Company Number: 2006088546

PATIENT
  Age: 70 Year
  Sex: Female
  Weight: 82.5547 kg

DRUGS (10)
  1. CELEBREX [Suspect]
  2. AROMASIN [Suspect]
     Indication: BREAST CANCER METASTATIC
     Dosage: 25 MG (25 MG,1 IN 1 D)
     Dates: start: 20060210
  3. NEURONTIN [Suspect]
     Indication: NEUROPATHY PERIPHERAL
     Dosage: 600 MG (300 MG, 2 IN 1 D)
  4. GABAPENTIN [Suspect]
     Dosage: 600 MG (300 MG, 2 IN 1 D)
  5. ATENOLOL [Concomitant]
  6. XANAX [Concomitant]
  7. VITAMNS (VITAMINS) [Concomitant]
  8. FLAXSEED OIL (LINSEED OIL) [Concomitant]
  9. VICODIN [Concomitant]
  10. ZOLOFT [Concomitant]

REACTIONS (9)
  - ABDOMINAL PAIN [None]
  - BREAST CANCER FEMALE [None]
  - BREAST CANCER RECURRENT [None]
  - CONDITION AGGRAVATED [None]
  - DRUG EFFECT DECREASED [None]
  - NEUROPATHY PERIPHERAL [None]
  - PULMONARY HYPERTENSION [None]
  - SOMNOLENCE [None]
  - THERAPEUTIC RESPONSE UNEXPECTED WITH DRUG SUBSTITUTION [None]
